FAERS Safety Report 8005715-4 (Version None)
Quarter: 2011Q4

REPORT INFORMATION
  Report Type: 
  Country: None (occurrence: None)
  Receive Date: 20111223
  Receipt Date: 20111221
  Transmission Date: 20120403
  Serious: Yes (Life-Threatening)
  Sender: FDA-Public Use
  Company Number: PHHY2011GB111091

PATIENT
  Age: 65 Year
  Sex: Male

DRUGS (13)
  1. BENDROFLUMETHIAZIDE [Concomitant]
  2. ALBUTEROL SULFATE AUTOHALER [Concomitant]
  3. TIOPRONIN [Concomitant]
  4. CITALOPRAM [Concomitant]
  5. PREDNISONE TAB [Concomitant]
  6. LEFLUNOMIDE [Suspect]
  7. OMEPRAZOLE [Concomitant]
  8. PREGABALIN [Concomitant]
  9. FLUTICASONE PROPIONATE/SALMETEROL [Concomitant]
  10. SIMVASTATIN [Concomitant]
  11. TAMSULOSIN HCL [Concomitant]
  12. AMLODIPINE [Concomitant]
  13. ASPIRIN [Concomitant]

REACTIONS (1)
  - CEREBROVASCULAR ACCIDENT [None]
